FAERS Safety Report 9525280 (Version 1)
Quarter: 2013Q3

REPORT INFORMATION
  Report Type: Spontaneous
  Country: US (occurrence: None)
  Receive Date: 20130913
  Receipt Date: 20130913
  Transmission Date: 20140515
  Serious: Yes (Hospitalization)
  Sender: FDA-Public Use
  Company Number: None

PATIENT
  Age: 67 Year
  Sex: Male
  Weight: 72.3 kg

DRUGS (1)
  1. LISINOPRIL [Suspect]
     Indication: HYPERTENSION
     Dosage: MG  EVERY DAY  PO?~01/10/2005  THRU ~09/08/2013
     Route: 048
     Dates: start: 20050110, end: 20130908

REACTIONS (1)
  - Angioedema [None]
